FAERS Safety Report 24531503 (Version 1)
Quarter: 2024Q4

REPORT INFORMATION
  Report Type: Report from Study
  Country: US (occurrence: US)
  Receive Date: 20241022
  Receipt Date: 20241022
  Transmission Date: 20250114
  Serious: No
  Sender: ROCHE
  Company Number: US-ROCHE-3436245

PATIENT
  Age: 72 Year
  Sex: Male

DRUGS (23)
  1. PULMOZYME [Suspect]
     Active Substance: DORNASE ALFA
     Indication: Cystic fibrosis
     Dosage: STRENGTH: 2.5-2.5 ML, INHALE 2.5 MG INTO THE LUNGS DAILY
     Route: 065
  2. PULMOZYME [Suspect]
     Active Substance: DORNASE ALFA
     Indication: Bronchiectasis
  3. MORNIFLUMATE [Concomitant]
     Active Substance: MORNIFLUMATE
  4. VOLTAREN [Concomitant]
     Active Substance: DICLOFENAC SODIUM
  5. ATARAX [Concomitant]
     Active Substance: HYDROXYZINE HYDROCHLORIDE
  6. INDOCIN [Concomitant]
     Active Substance: INDOMETHACIN
  7. NASONEX [Concomitant]
     Active Substance: MOMETASONE FUROATE
  8. PRILOSEC [Concomitant]
     Active Substance: OMEPRAZOLE MAGNESIUM
  9. VIAGRA [Concomitant]
     Active Substance: SILDENAFIL CITRATE
  10. PROVENTIL [Concomitant]
     Active Substance: ALBUTEROL
  11. SYMBICORT [Concomitant]
     Active Substance: BUDESONIDE\FORMOTEROL FUMARATE DIHYDRATE
  12. SPIRIVA [Concomitant]
     Active Substance: TIOTROPIUM BROMIDE MONOHYDRATE
  13. SYNTHROID [Concomitant]
     Active Substance: LEVOTHYROXINE SODIUM
  14. PROAIR HFA [Concomitant]
     Active Substance: ALBUTEROL SULFATE
  15. CREON [Concomitant]
     Active Substance: PANCRELIPASE AMYLASE\PANCRELIPASE LIPASE\PANCRELIPASE PROTEASE
  16. ZITHROMAX [Concomitant]
     Active Substance: AZITHROMYCIN DIHYDRATE
  17. ZOLOFT [Concomitant]
     Active Substance: SERTRALINE HYDROCHLORIDE
  18. SINEMET [Concomitant]
     Active Substance: CARBIDOPA\LEVODOPA
  19. LASIX [Concomitant]
     Active Substance: FUROSEMIDE
  20. BENICAR [Concomitant]
     Active Substance: OLMESARTAN MEDOXOMIL
  21. TYLENOL [Concomitant]
     Active Substance: ACETAMINOPHEN
  22. ZYLOPRIM [Concomitant]
     Active Substance: ALLOPURINOL
  23. CHOLECALCIFEROL [Concomitant]
     Active Substance: CHOLECALCIFEROL

REACTIONS (2)
  - Product administration error [Unknown]
  - No adverse event [Unknown]
